FAERS Safety Report 5223486-1 (Version None)
Quarter: 2007Q1

REPORT INFORMATION
  Report Type: 
  Country: None (occurrence: None)
  Receive Date: 20070125
  Receipt Date: 20070122
  Transmission Date: 20070707
  Serious: Yes (Disabling)
  Sender: FDA-Public Use
  Company Number: SP01068

PATIENT
  Age: 53 Year
  Sex: Female
  Weight: 90.7194 kg

DRUGS (2)
  1. XIFAXAN [Suspect]
     Indication: COLITIS COLLAGENOUS
     Dosage: 1200 MG (200 MG, 6 IN 1 D), ORAL
     Route: 048
     Dates: start: 20061128, end: 20061220
  2. FLORAQ [Suspect]
     Dates: start: 20061128, end: 20061220

REACTIONS (12)
  - BURNING SENSATION [None]
  - DEPRESSED MOOD [None]
  - DRUG INEFFECTIVE [None]
  - HEADACHE [None]
  - MUSCULAR WEAKNESS [None]
  - MYALGIA [None]
  - NAUSEA [None]
  - PRURITUS [None]
  - PYREXIA [None]
  - RASH [None]
  - SOMNOLENCE [None]
  - VOMITING [None]
